FAERS Safety Report 26118665 (Version 1)
Quarter: 2025Q4

REPORT INFORMATION
  Report Type: Spontaneous
  Country: US (occurrence: US)
  Receive Date: 20251203
  Receipt Date: 20251203
  Transmission Date: 20260117
  Serious: Yes (Death, Hospitalization, Other)
  Sender: JOHNSON AND JOHNSON
  Company Number: US-JNJFOC-20251173239

PATIENT

DRUGS (1)
  1. TECVAYLI [Suspect]
     Active Substance: TECLISTAMAB-CQYV
     Indication: Product used for unknown indication
     Route: 065

REACTIONS (4)
  - Death [Fatal]
  - Failure to thrive [Unknown]
  - Diarrhoea [Not Recovered/Not Resolved]
  - Disease progression [Unknown]
